FAERS Safety Report 6948579-X (Version None)
Quarter: 2010Q3

REPORT INFORMATION
  Report Type: 
  Country: None (occurrence: None)
  Receive Date: 20100828
  Receipt Date: 20091116
  Transmission Date: 20110219
  Serious: No
  Sender: FDA-Public Use
  Company Number: US-ABBOTT-09P-163-0609367-00

PATIENT
  Sex: Female
  Weight: 86.26 kg

DRUGS (16)
  1. NIASPAN [Suspect]
     Indication: BLOOD TRIGLYCERIDES INCREASED
     Route: 048
     Dates: start: 20091115
  2. NIASPAN [Suspect]
     Route: 048
     Dates: start: 20091016, end: 20091115
  3. GLUCOPHAGE [Concomitant]
     Indication: DIABETES MELLITUS
     Route: 048
     Dates: start: 20091017
  4. GLUCOPHAGE [Concomitant]
     Route: 048
     Dates: end: 20091016
  5. PRILOSEC [Concomitant]
     Indication: GASTROOESOPHAGEAL REFLUX DISEASE
     Route: 048
  6. LOPRESSOR [Concomitant]
     Indication: MYOCARDIAL INFARCTION
     Route: 048
  7. LOPRESSOR [Concomitant]
     Indication: HYPERTENSION
  8. BENICAR [Concomitant]
     Indication: HYPERTENSION
     Route: 048
  9. KLOR-CON [Concomitant]
     Indication: ELECTROLYTE SUBSTITUTION THERAPY
     Route: 048
  10. ASPIRIN [Concomitant]
     Indication: CARDIAC DISORDER
     Route: 048
  11. ASPIRIN [Concomitant]
     Indication: FLUSHING
  12. ASPIRIN [Concomitant]
     Indication: PROPHYLAXIS
  13. TRILIPIX [Concomitant]
     Indication: BLOOD TRIGLYCERIDES
     Route: 048
  14. TRILIPIX [Concomitant]
     Indication: BLOOD CHOLESTEROL
  15. CALCIUM W/D [Concomitant]
     Indication: MINERAL SUPPLEMENTATION
     Dosage: 600/400
     Route: 048
  16. CENTRUM ULTRA WOMENS [Concomitant]
     Indication: VITAMIN SUPPLEMENTATION
     Route: 048

REACTIONS (5)
  - ABDOMINAL DISCOMFORT [None]
  - BLOOD GLUCOSE INCREASED [None]
  - COUGH [None]
  - HEADACHE [None]
  - NASOPHARYNGITIS [None]
